FAERS Safety Report 6295756-X (Version None)
Quarter: 2009Q3

REPORT INFORMATION
  Report Type: 
  Country: None (occurrence: None)
  Receive Date: 20090804
  Receipt Date: 20090803
  Transmission Date: 20100115
  Serious: Yes (Other)
  Sender: FDA-Public Use
  Company Number: US-PFIZER INC-2009224129

PATIENT
  Sex: Male
  Weight: 86.168 kg

DRUGS (7)
  1. LYRICA [Suspect]
     Indication: MUSCULOSKELETAL DISORDER
     Dosage: 75 MG, 2X/DAY
     Route: 048
     Dates: start: 20090601, end: 20090604
  2. LYRICA [Suspect]
     Indication: NERVE INJURY
  3. HYZAAR [Concomitant]
     Indication: HYPERTENSION
     Dosage: UNK
  4. ACTOS [Concomitant]
     Indication: TYPE 2 DIABETES MELLITUS
     Dosage: UNK
  5. GLIPIZIDE [Concomitant]
     Indication: TYPE 2 DIABETES MELLITUS
     Dosage: UNK
  6. METFORMIN [Concomitant]
     Indication: TYPE 2 DIABETES MELLITUS
     Dosage: UNK
  7. TAMSULOSIN HYDROCHLORIDE [Concomitant]
     Dosage: UNK

REACTIONS (1)
  - BLOOD GLUCOSE INCREASED [None]
